FAERS Safety Report 7088921-5 (Version None)
Quarter: 2010Q4

REPORT INFORMATION
  Report Type: 
  Country: None (occurrence: None)
  Receive Date: 20101108
  Receipt Date: 20101028
  Transmission Date: 20110411
  Serious: Yes (Hospitalization)
  Sender: FDA-Public Use
  Company Number: PHHY2010CN72963

PATIENT
  Sex: Male

DRUGS (2)
  1. SEBIVO [Suspect]
     Indication: HEPATITIS B
     Dosage: UNK
     Route: 048
     Dates: start: 20090301, end: 20101001
  2. ADEFOVIR DIPIVOXIL KIT [Concomitant]

REACTIONS (3)
  - AMYOTROPHY [None]
  - LIMB DISCOMFORT [None]
  - MUSCULAR WEAKNESS [None]
